FAERS Safety Report 6848498-3 (Version None)
Quarter: 2010Q3

REPORT INFORMATION
  Report Type: 
  Country: None (occurrence: None)
  Receive Date: 20100716
  Receipt Date: 20100707
  Transmission Date: 20110219
  Serious: Yes (Life-Threatening, Hospitalization)
  Sender: FDA-Public Use
  Company Number: US-JNJFOC-20100109375

PATIENT
  Sex: Female
  Weight: 117.03 kg

DRUGS (8)
  1. NUCYNTA [Suspect]
     Indication: BACK PAIN
     Dosage: 1-2 TABLETS ONCE A DAY
     Route: 048
  2. EFFEXOR [Concomitant]
     Indication: PRODUCT USED FOR UNKNOWN INDICATION
     Route: 065
  3. NEURONTIN [Concomitant]
     Route: 048
  4. HYDROCODONE [Concomitant]
     Indication: PAIN
     Route: 048
  5. AMBIEN [Concomitant]
     Route: 048
  6. VICODIN [Concomitant]
     Route: 048
  7. HYDROCHLOROTHIAZIDE [Concomitant]
     Route: 065
  8. IMODIUM [Concomitant]
     Route: 065

REACTIONS (4)
  - BLOOD POTASSIUM DECREASED [None]
  - CARDIAC ARREST [None]
  - SYNCOPE [None]
  - VENTRICULAR TACHYCARDIA [None]
